FAERS Safety Report 11004507 (Version 1)
Quarter: 2015Q2

REPORT INFORMATION
  Report Type: Report from Study
  Country: US (occurrence: US)
  Receive Date: 20150409
  Receipt Date: 20150409
  Transmission Date: 20150821
  Serious: Yes (Other)
  Sender: FDA-Public Use
  Company Number: US-ALEXION-A201501167

PATIENT

DRUGS (2)
  1. SOLIRIS [Suspect]
     Active Substance: ECULIZUMAB
     Indication: PRODUCT USED FOR UNKNOWN INDICATION
     Route: 042
  2. ANTIBIOTIC                         /00011701/ [Suspect]
     Active Substance: UNSPECIFIED INGREDIENT
     Indication: CELLULITIS STAPHYLOCOCCAL
     Dosage: UNK
     Route: 065

REACTIONS (2)
  - Cellulitis staphylococcal [Recovered/Resolved]
  - Drug hypersensitivity [Recovered/Resolved]
